FAERS Safety Report 6545548-9 (Version None)
Quarter: 2010Q1

REPORT INFORMATION
  Report Type: 
  Country: None (occurrence: None)
  Receive Date: 20100121
  Receipt Date: 20100113
  Transmission Date: 20100710
  Serious: Yes (Life-Threatening, Hospitalization)
  Sender: FDA-Public Use
  Company Number: GB-PFIZER INC-2010005263

PATIENT
  Age: 79 Year
  Sex: Male
  Weight: 78.4 kg

DRUGS (7)
  1. IRINOTECAN HCL [Suspect]
     Indication: RECTAL CANCER
     Dosage: 120 MG, WEEKLY
     Route: 042
     Dates: start: 20090914, end: 20091005
  2. ERBITUX [Suspect]
     Indication: RECTAL CANCER
     Dosage: 800 MG, WEEKLY
     Route: 036
     Dates: start: 20090909, end: 20091012
  3. CAPECITABINE [Suspect]
     Indication: RECTAL CANCER
     Dosage: 2600 MG, DAILY
     Route: 048
     Dates: start: 20090914, end: 20091016
  4. LEVOTHYROXINE [Concomitant]
     Indication: HYPOTHYROIDISM
     Dosage: 75 UG, 1X/DAY
     Route: 048
     Dates: start: 20070101
  5. DUTASTERIDE [Concomitant]
     Indication: BENIGN PROSTATIC HYPERPLASIA
     Dosage: 75 UG, 1X/DAY
     Route: 048
     Dates: start: 20060101
  6. PAROXETINE HYDROCHLORIDE [Concomitant]
     Indication: DEPRESSION
     Dosage: 20 MG, 1X/DAY
     Route: 048
     Dates: start: 20050101
  7. SIMVASTATIN [Concomitant]
     Indication: HYPERCHOLESTEROLAEMIA
     Dosage: 40 MG, 1X/DAY
     Route: 048
     Dates: start: 20090201

REACTIONS (2)
  - ANAEMIA [None]
  - ANAL ABSCESS [None]
